FAERS Safety Report 12313790 (Version 3)
Quarter: 2017Q1

REPORT INFORMATION
  Report Type: Spontaneous
  Country: US (occurrence: US)
  Receive Date: 20160428
  Receipt Date: 20170316
  Transmission Date: 20170428
  Serious: Yes (Hospitalization, Other)
  Sender: FDA-Public Use
  Company Number: US-009507513-1604USA016201

PATIENT
  Sex: Female
  Weight: 73.92 kg

DRUGS (2)
  1. NUVARING [Suspect]
     Active Substance: ETHINYL ESTRADIOL\ETONOGESTREL
     Indication: CONTRACEPTION
     Dosage: INSERT ONE IN VAGINA FOR 3 WEEKS, THEN 1 WEEK RING FREE
     Route: 067
     Dates: start: 201212, end: 20140507
  2. NUVARING [Suspect]
     Active Substance: ETHINYL ESTRADIOL\ETONOGESTREL
     Dosage: INSERT ONE IN VAGINA FOR 3 WEEKS, THEN 1 WEEK RING FREE
     Route: 067
     Dates: start: 200605, end: 200611

REACTIONS (18)
  - Diverticulitis [Unknown]
  - Limb injury [Unknown]
  - H1N1 influenza [Unknown]
  - Diverticulum [Not Recovered/Not Resolved]
  - Dysmenorrhoea [Unknown]
  - Respiratory tract infection [Unknown]
  - Haematuria [Recovered/Resolved]
  - Migraine [Unknown]
  - Uterine leiomyoma [Unknown]
  - May-Thurner syndrome [Unknown]
  - Respiratory tract infection [Unknown]
  - Deep vein thrombosis [Unknown]
  - Maternal exposure before pregnancy [Recovered/Resolved]
  - Haematuria [Unknown]
  - Diverticulitis [Recovering/Resolving]
  - Urinary retention [Recovering/Resolving]
  - Infection [Unknown]
  - Tonsillectomy [Unknown]

NARRATIVE: CASE EVENT DATE: 200702
